FAERS Safety Report 5442484-6 (Version None)
Quarter: 2007Q3

REPORT INFORMATION
  Report Type: 
  Country: None (occurrence: None)
  Receive Date: 20070829
  Receipt Date: 20070823
  Transmission Date: 20080115
  Serious: Yes (Other)
  Sender: FDA-Public Use
  Company Number: ABPAM-07-0634

PATIENT
  Age: 63 Year
  Sex: Female
  Weight: 156 kg

DRUGS (3)
  1. ABRAXANE [Suspect]
     Indication: BREAST CANCER METASTATIC
     Dosage: 180 MG/DATE OF LAST DOSE 18JUL07 / 3 DOSES MG/M2, WEEKLY ( 3 WEEKS ON AND 1 WEEK OFF)), INTRAVENOUS
     Route: 042
     Dates: start: 20070619
  2. HORMONE THERAPY [Concomitant]
  3. AREDIA [Concomitant]

REACTIONS (4)
  - BLISTER [None]
  - PAIN [None]
  - PEMPHIGOID [None]
  - PRURITUS [None]
